FAERS Safety Report 22612082 (Version 1)
Quarter: 2023Q2

REPORT INFORMATION
  Report Type: Spontaneous
  Country: BG (occurrence: BG)
  Receive Date: 20230617
  Receipt Date: 20230617
  Transmission Date: 20230721
  Serious: Yes (Hospitalization, Other)
  Sender: FDA-Public Use
  Company Number: BG-009507513-2306BGR000236

PATIENT
  Age: 52 Year
  Sex: Male

DRUGS (7)
  1. PEMETREXED [Suspect]
     Active Substance: PEMETREXED
     Indication: Metastases to central nervous system
     Dosage: UNK
     Route: 065
     Dates: start: 20200708
  2. CARBOPLATIN [Suspect]
     Active Substance: CARBOPLATIN
     Indication: Metastases to central nervous system
     Dosage: UNK
     Route: 065
     Dates: start: 20200708
  3. CARBOPLATIN [Suspect]
     Active Substance: CARBOPLATIN
     Dosage: UNK
     Route: 065
     Dates: start: 2020
  4. CARBOPLATIN [Suspect]
     Active Substance: CARBOPLATIN
     Dosage: UNK
     Route: 065
     Dates: start: 2020
  5. KEYTRUDA [Suspect]
     Active Substance: PEMBROLIZUMAB
     Indication: Metastases to central nervous system
     Dosage: UNK
     Route: 065
     Dates: start: 2020
  6. KEYTRUDA [Suspect]
     Active Substance: PEMBROLIZUMAB
     Dosage: UNK
     Route: 065
     Dates: start: 2020
  7. KEYTRUDA [Suspect]
     Active Substance: PEMBROLIZUMAB
     Dosage: UNK
     Route: 065
     Dates: start: 20200708

REACTIONS (3)
  - Anaemia [Recovering/Resolving]
  - Nephropathy toxic [Recovering/Resolving]
  - Gliosis [Unknown]

NARRATIVE: CASE EVENT DATE: 20200101
